FAERS Safety Report 20725501 (Version 6)
Quarter: 2022Q3

REPORT INFORMATION
  Report Type: Report from Study
  Country: US (occurrence: US)
  Receive Date: 20220419
  Receipt Date: 20220901
  Transmission Date: 20221027
  Serious: Yes (Hospitalization, Other)
  Sender: FDA-Public Use
  Company Number: US-NOVARTISTESTPH-NVSC2022US090224

PATIENT
  Sex: Female

DRUGS (2)
  1. PROMACTA [Suspect]
     Active Substance: ELTROMBOPAG OLAMINE
     Indication: Product used for unknown indication
     Dosage: UNK
     Route: 048
  2. PROMACTA [Suspect]
     Active Substance: ELTROMBOPAG OLAMINE
     Dosage: 75 MG
     Route: 048

REACTIONS (11)
  - Urinary tract infection [Unknown]
  - Atrial fibrillation [Unknown]
  - Kidney infection [Unknown]
  - Neuropathy peripheral [Unknown]
  - Myelodysplastic syndrome [Unknown]
  - Dyspnoea [Unknown]
  - Chromaturia [Unknown]
  - Decreased appetite [Unknown]
  - Platelet count decreased [Unknown]
  - Peripheral swelling [Unknown]
  - Drug ineffective [Unknown]
